FAERS Safety Report 9189242 (Version 1)
Quarter: 2013Q1

REPORT INFORMATION
  Report Type: Spontaneous
  Country: US (occurrence: None)
  Receive Date: 20130321
  Receipt Date: 20130321
  Transmission Date: 20140127
  Serious: Yes (Life-Threatening, Hospitalization)
  Sender: FDA-Public Use
  Company Number: None

PATIENT
  Age: 86 Year
  Sex: Female
  Weight: 80 kg

DRUGS (1)
  1. RIVAROXABAN [Suspect]
     Indication: ATRIAL FIBRILLATION
     Dosage: 20 MG DAILY PO
     Route: 048
     Dates: start: 20130306, end: 20130320

REACTIONS (4)
  - Subarachnoid haemorrhage [None]
  - Intracranial aneurysm [None]
  - Haemorrhage intracranial [None]
  - Unresponsive to stimuli [None]
